FAERS Safety Report 23793230 (Version 6)
Quarter: 2024Q3

REPORT INFORMATION
  Report Type: Spontaneous
  Country: JP (occurrence: JP)
  Receive Date: 20240429
  Receipt Date: 20240820
  Transmission Date: 20241016
  Serious: Yes (Life-Threatening, Hospitalization)
  Sender: AMGEN
  Company Number: JP-AMGEN-JPNSP2024083581

PATIENT
  Age: 72 Year
  Sex: Male
  Weight: 68 kg

DRUGS (13)
  1. REPATHA [Suspect]
     Active Substance: EVOLOCUMAB
     Indication: Hypercholesterolaemia
     Dosage: 420 MILLIGRAM, QMO
     Route: 058
     Dates: start: 20230921, end: 20240415
  2. ROSUVASTATIN [Concomitant]
     Active Substance: ROSUVASTATIN\ROSUVASTATIN CALCIUM
     Indication: Dyslipidaemia
     Dosage: 10 MILLIGRAM, QD
     Dates: start: 20230120, end: 20230920
  3. ROSUVASTATIN [Concomitant]
     Active Substance: ROSUVASTATIN\ROSUVASTATIN CALCIUM
     Indication: Hypercholesterolaemia
     Dosage: 5 MILLIGRAM, QD
     Dates: start: 20230921, end: 20231015
  4. ROSUVASTATIN [Concomitant]
     Active Substance: ROSUVASTATIN\ROSUVASTATIN CALCIUM
     Indication: Chronic coronary syndrome
     Dosage: 2.5 MILLIGRAM, QD
     Dates: start: 20231016
  5. ROSUVASTATIN [Concomitant]
     Active Substance: ROSUVASTATIN\ROSUVASTATIN CALCIUM
     Indication: Angina pectoris
  6. PEMAFIBRATE [Concomitant]
     Active Substance: PEMAFIBRATE
     Indication: Dyslipidaemia
     Dosage: 0.1 MILLIGRAM, BID
     Dates: start: 20190409, end: 20240218
  7. PEMAFIBRATE [Concomitant]
     Active Substance: PEMAFIBRATE
     Indication: Hyperlipidaemia
     Dosage: 0.2 MILLIGRAM, QD
     Dates: start: 20240219
  8. PEMAFIBRATE [Concomitant]
     Active Substance: PEMAFIBRATE
     Indication: Hypertriglyceridaemia
  9. PRASUGREL HYDROCHLORIDE [Concomitant]
     Active Substance: PRASUGREL HYDROCHLORIDE
     Indication: Chronic coronary syndrome
     Dosage: 3.75 MILLIGRAM, QD
     Dates: start: 20220707
  10. PRASUGREL HYDROCHLORIDE [Concomitant]
     Active Substance: PRASUGREL HYDROCHLORIDE
     Indication: Angina pectoris
  11. AMLODIPINE [Concomitant]
     Active Substance: AMLODIPINE BESYLATE
     Indication: Hypertension
     Dosage: 5 MILLIGRAM, QD
     Dates: start: 20180327
  12. URSODIOL [Concomitant]
     Active Substance: URSODIOL
     Indication: Renal impairment
     Dosage: 200 MILLIGRAM, TID
     Dates: start: 20210420
  13. URSODIOL [Concomitant]
     Active Substance: URSODIOL
     Indication: Chronic hepatitis C

REACTIONS (1)
  - Anaphylactic shock [Recovered/Resolved]

NARRATIVE: CASE EVENT DATE: 20240415
